FAERS Safety Report 6528676-3 (Version None)
Quarter: 2010Q1

REPORT INFORMATION
  Report Type: 
  Country: None (occurrence: None)
  Receive Date: 20100106
  Receipt Date: 20091231
  Transmission Date: 20100710
  Serious: Yes (Death, Hospitalization)
  Sender: FDA-Public Use
  Company Number: IL-CELGENEUS-082-C5013-09101399

PATIENT
  Sex: Male
  Weight: 89 kg

DRUGS (6)
  1. CC-5013 [Suspect]
     Indication: MULTIPLE MYELOMA
     Route: 048
     Dates: start: 20090924, end: 20091011
  2. MELPHALAN [Suspect]
     Indication: MULTIPLE MYELOMA
     Route: 048
     Dates: start: 20080320, end: 20081116
  3. PREDNISONE [Suspect]
     Indication: MULTIPLE MYELOMA
     Route: 048
     Dates: start: 20080320, end: 20081116
  4. MORPHINE [Concomitant]
     Route: 055
     Dates: start: 20091012, end: 20091012
  5. FUROSEMIDE [Concomitant]
     Route: 051
     Dates: start: 20091012, end: 20091012
  6. IPRATROPIUM BROMIDE [Concomitant]
     Route: 055
     Dates: start: 20091012, end: 20091012

REACTIONS (1)
  - SEPSIS [None]
